FAERS Safety Report 12626117 (Version 1)
Quarter: 2016Q3

REPORT INFORMATION
  Report Type: Spontaneous
  Country: US (occurrence: US)
  Receive Date: 20160805
  Receipt Date: 20160805
  Transmission Date: 20161109
  Serious: Yes (Death, Hospitalization, Other)
  Sender: FDA-Public Use
  Company Number: US-BRISTOL-MYERS SQUIBB COMPANY-BMS-2016-062917

PATIENT
  Sex: Male

DRUGS (1)
  1. ELIQUIS [Suspect]
     Active Substance: APIXABAN
     Indication: CEREBROVASCULAR ACCIDENT PROPHYLAXIS
     Dosage: 5 MG, BID
     Route: 065

REACTIONS (7)
  - Haemorrhagic anaemia [Fatal]
  - Acute kidney injury [Fatal]
  - Peritoneal haemorrhage [Fatal]
  - Splenic rupture [Fatal]
  - Shock haemorrhagic [Fatal]
  - Hyperkalaemia [Fatal]
  - Transfusion [Unknown]
